FAERS Safety Report 8397541-1 (Version None)
Quarter: 2012Q2

REPORT INFORMATION
  Report Type: 
  Country: None (occurrence: None)
  Receive Date: 20120529
  Receipt Date: 20120529
  Transmission Date: 20120825
  Serious: Yes (Life-Threatening)
  Sender: FDA-Public Use
  Company Number: None

PATIENT
  Sex: Male
  Weight: 52.9 kg

DRUGS (17)
  1. CIPROFLOXACIN [Concomitant]
  2. MICAFUNGIN [Concomitant]
  3. CYCLOPHOSPHAMIDE [Suspect]
     Indication: CHRONIC MYELOID LEUKAEMIA
     Dosage: 2845 MG X 2 DOSES DAILY IV
     Route: 042
     Dates: start: 20120428, end: 20120429
  4. CYCLOPHOSPHAMIDE [Suspect]
     Indication: TRANSPLANT
     Dosage: 2845 MG X 2 DOSES DAILY IV
     Route: 042
     Dates: start: 20120428, end: 20120429
  5. PERIACTIN [Concomitant]
  6. PENTAMIDINE ISETHIONATE [Concomitant]
  7. ERGOCALCIFEROL [Concomitant]
  8. MMP [Concomitant]
  9. NEUPOGEN [Concomitant]
  10. ATIVAN [Concomitant]
  11. ZOSYN [Concomitant]
  12. MELATONIN [Concomitant]
  13. BUSULFAN [Suspect]
     Indication: TRANSPLANT
     Dosage: 45 MG X 7 DOSES 53 MG X 9 DOSES EVERY 6 HR IV
     Route: 042
     Dates: start: 20120424, end: 20120428
  14. BUSULFAN [Suspect]
     Indication: CHRONIC MYELOID LEUKAEMIA
     Dosage: 45 MG X 7 DOSES 53 MG X 9 DOSES EVERY 6 HR IV
     Route: 042
     Dates: start: 20120424, end: 20120428
  15. IMMUNE GLOBULIN INTRAVENOUS (HUMAN) [Concomitant]
  16. URSODIOL [Concomitant]
  17. ACYCLOVIR [Concomitant]

REACTIONS (4)
  - BLOOD CREATININE INCREASED [None]
  - VENOOCCLUSIVE DISEASE [None]
  - CONTINUOUS HAEMODIAFILTRATION [None]
  - HYPERBILIRUBINAEMIA [None]
